FAERS Safety Report 25935518 (Version 2)
Quarter: 2025Q4

REPORT INFORMATION
  Report Type: Spontaneous
  Country: US (occurrence: US)
  Receive Date: 20251017
  Receipt Date: 20251122
  Transmission Date: 20260117
  Serious: No
  Sender: SANOFI AVENTIS
  Company Number: US-SA-2025SA309130

PATIENT
  Age: 53 Year
  Sex: Female

DRUGS (16)
  1. DUPIXENT [Suspect]
     Active Substance: DUPILUMAB
     Indication: Urticaria
     Dosage: 300 MG, QOW
     Route: 058
     Dates: start: 20250529, end: 20251104
  2. MINOXIDIL [Concomitant]
     Active Substance: MINOXIDIL
     Dosage: 1.000DF QD
     Route: 048
  3. IPRATROPIUM BROMIDE [Concomitant]
     Active Substance: IPRATROPIUM BROMIDE
     Dosage: 1.000DF
     Route: 045
  4. METFORMIN HYDROCHLORIDE [Concomitant]
     Active Substance: METFORMIN HYDROCHLORIDE
     Dosage: 1.000DF BID
     Route: 048
  5. TRIAMTERENE [Concomitant]
     Active Substance: TRIAMTERENE
  6. FINASTERIDE [Concomitant]
     Active Substance: FINASTERIDE
     Dosage: 1.000DF QD
     Route: 048
  7. THYROID [Concomitant]
     Active Substance: LEVOTHYROXINE\LIOTHYRONINE
     Dosage: 1.000DF QD
     Route: 048
  8. FAMOTIDINE [Concomitant]
     Active Substance: FAMOTIDINE
     Dosage: BID
     Route: 048
  9. QULIPTA [Concomitant]
     Active Substance: ATOGEPANT
     Dosage: 1.000DF QD
     Route: 048
  10. REMIBRUTINIB [Concomitant]
     Active Substance: REMIBRUTINIB
     Dosage: 1.000 QD
     Route: 048
  11. ZYRTEC [Concomitant]
     Active Substance: CETIRIZINE HYDROCHLORIDE
     Dosage: 3.000DF BID
     Route: 048
  12. PROPRANOLOL HYDROCHLORIDE [Concomitant]
     Active Substance: PROPRANOLOL HYDROCHLORIDE
     Dosage: 1 UNK, BID
     Route: 048
  13. MIEBO [Concomitant]
     Active Substance: PERFLUOROHEXYLOCTANE
  14. BREO ELLIPTA [Concomitant]
     Active Substance: FLUTICASONE FUROATE\VILANTEROL TRIFENATATE
     Dosage: 1.000DF QD
  15. PROGESTERONE [Concomitant]
     Active Substance: PROGESTERONE
     Dosage: 1.000DF QD
     Route: 048
  16. TOPIRAMATE [Concomitant]
     Active Substance: TOPIRAMATE
     Dosage: 1 DF, BID
     Route: 048

REACTIONS (3)
  - Rhinitis allergic [Unknown]
  - Urticaria [Recovering/Resolving]
  - Product use in unapproved indication [Unknown]

NARRATIVE: CASE EVENT DATE: 20250101
